FAERS Safety Report 19310492 (Version 2)
Quarter: 2021Q2

REPORT INFORMATION
  Report Type: Spontaneous
  Country: JP (occurrence: JP)
  Receive Date: 20210526
  Receipt Date: 20210625
  Transmission Date: 20210717
  Serious: Yes (Other)
  Sender: FDA-Public Use
  Company Number: JP-BAYER-2021-147470

PATIENT
  Age: 82 Year
  Sex: Male

DRUGS (2)
  1. STIVARGA [Suspect]
     Active Substance: REGORAFENIB
     Indication: COLON CANCER
     Dosage: DAILY DOSE 120 MG (2 CYCLES)
     Route: 048
     Dates: start: 202005
  2. STIVARGA [Suspect]
     Active Substance: REGORAFENIB
     Indication: COLON CANCER
     Dosage: DAILY DOSE 80 MG (6 CYCLES)
     Route: 048

REACTIONS (6)
  - Metastases to lung [None]
  - Fatigue [Recovering/Resolving]
  - Peripheral sensory neuropathy [Recovering/Resolving]
  - Off label use [None]
  - Palmar-plantar erythrodysaesthesia syndrome [Recovering/Resolving]
  - Product use issue [None]

NARRATIVE: CASE EVENT DATE: 202005
